FAERS Safety Report 10203931 (Version 2)
Quarter: 2014Q2

REPORT INFORMATION
  Report Type: Spontaneous
  Country: US (occurrence: US)
  Receive Date: 20140529
  Receipt Date: 20140529
  Transmission Date: 20141212
  Serious: No
  Sender: FDA-Public Use
  Company Number: US-MYLANLABS-2013S1011653

PATIENT
  Age: 42 Year
  Sex: Female

DRUGS (3)
  1. BUPROPION HYDROCHLORIDE TABLETS [Suspect]
     Indication: MIGRAINE
     Dates: start: 201205, end: 201305
  2. BUPROPION HYDROCHLORIDE TABLETS [Suspect]
     Indication: OFF LABEL USE
     Dates: start: 201205, end: 201305
  3. AZURETTE [Concomitant]
     Dosage: BEEN ON IT FOR OVER 10 YEARS

REACTIONS (1)
  - Drug eruption [Recovered/Resolved]
